FAERS Safety Report 7125533-9 (Version None)
Quarter: 2010Q4

REPORT INFORMATION
  Report Type: 
  Country: None (occurrence: None)
  Receive Date: 20101129
  Receipt Date: 20101124
  Transmission Date: 20110411
  Serious: Yes (Other)
  Sender: FDA-Public Use
  Company Number: A0896451A

PATIENT
  Age: 56 Year
  Sex: Male

DRUGS (1)
  1. NIQUITIN 21MG [Suspect]
     Indication: SMOKING CESSATION THERAPY
     Route: 062
     Dates: start: 20101001

REACTIONS (2)
  - CONVULSION [None]
  - DRUG ADMINISTRATION ERROR [None]
